FAERS Safety Report 15545881 (Version 2)
Quarter: 2019Q1

REPORT INFORMATION
  Report Type: Spontaneous
  Country: US (occurrence: US)
  Receive Date: 20181024
  Receipt Date: 20190118
  Transmission Date: 20190417
  Serious: No
  Sender: FDA-Public Use
  Company Number: US-SA-2018SA293016

PATIENT
  Age: 28 Year
  Sex: Female
  Weight: 54 kg

DRUGS (2)
  1. ADMELOG [Suspect]
     Active Substance: INSULIN LISPRO
     Dosage: UNK UNK, UNK
     Route: 065
  2. FLUBLOK QUADRIVALENT 2018/2019 [Suspect]
     Active Substance: INFLUENZA A VIRUS A/MICHIGAN/45/2015 (H1N1) RECOMBINANT HEMAGGLUTININ ANTIGEN\INFLUENZA A VIRUS A/SINGAPORE/INFIMH-16-0019/2016 (H3N2) RECOMBINANT HEMAGGLUTININ ANTIGEN\INFLUENZA B VIRUS B/MARYLAND/15/2016 RECOMBINANT HEMAGGLUTININ ANTIGEN\INFLUENZA B VIRUS B/PHUKET/3073/2013 RECOMBINANT HEMAGGLUTIN
     Route: 030
     Dates: start: 20181017

REACTIONS (4)
  - Swelling [Recovering/Resolving]
  - Erythema [Recovering/Resolving]
  - Unevaluable event [Recovering/Resolving]
  - Dyspnoea [Unknown]

NARRATIVE: CASE EVENT DATE: 201810
